FAERS Safety Report 5780031-X (Version None)
Quarter: 2008Q2

REPORT INFORMATION
  Report Type: 
  Country: None (occurrence: None)
  Receive Date: 20080620
  Receipt Date: 20080610
  Transmission Date: 20081010
  Serious: Yes (Hospitalization)
  Sender: FDA-Public Use
  Company Number: US-ROCHE-563057

PATIENT
  Sex: Male

DRUGS (13)
  1. VALGANCICLOVIR HCL [Suspect]
     Route: 048
     Dates: start: 20070510, end: 20070920
  2. PROGRAF [Concomitant]
     Route: 048
  3. MYCOPHENOLATE MOFETIL [Concomitant]
     Dosage: STOPPED AND RESTARTED ON UNSPECIFIED DATES.
     Route: 048
  4. FAMOTIDINE [Concomitant]
     Route: 048
  5. DOXYCYCLINE HYCLATE [Concomitant]
     Route: 048
  6. BACTRIM [Concomitant]
     Dosage: DOSAGE  : 80-400 MG TAB
     Route: 048
  7. BACTRIM [Concomitant]
     Dosage: DOSAGE  : 80-400 MG TAB
     Route: 048
  8. NIFEDINE [Concomitant]
     Route: 048
  9. LOPRESSOR [Concomitant]
     Route: 048
  10. COLACE [Concomitant]
     Route: 048
  11. CLONIDINE [Concomitant]
  12. PROTONIX [Concomitant]
     Dosage: MEDICATION AT DISCHARGE.
  13. PREDNISONE TAB [Concomitant]
     Dosage: MEDICATION AT DISCHARGE.
     Route: 048

REACTIONS (1)
  - CYTOMEGALOVIRUS SYNDROME [None]
